FAERS Safety Report 25834153 (Version 1)
Quarter: 2025Q3

REPORT INFORMATION
  Report Type: Spontaneous
  Country: US (occurrence: US)
  Receive Date: 20250923
  Receipt Date: 20250923
  Transmission Date: 20251020
  Serious: No
  Sender: ABBVIE
  Company Number: US-ABBVIE-6466190

PATIENT
  Age: 64 Year
  Sex: Male
  Weight: 110.22 kg

DRUGS (1)
  1. SKYRIZI [Suspect]
     Active Substance: RISANKIZUMAB-RZAA
     Indication: Crohn^s disease
     Route: 058
     Dates: start: 20250911

REACTIONS (2)
  - Injection site haemorrhage [Recovered/Resolved]
  - Device issue [Not Recovered/Not Resolved]

NARRATIVE: CASE EVENT DATE: 20250911
